FAERS Safety Report 26130562 (Version 1)
Quarter: 2025Q4

REPORT INFORMATION
  Report Type: Report from Study
  Country: CN (occurrence: CN)
  Receive Date: 20251208
  Receipt Date: 20251208
  Transmission Date: 20260118
  Serious: Yes (Other)
  Sender: ROCHE
  Company Number: CN-ROCHE-10000452819

PATIENT

DRUGS (2)
  1. RITUXIMAB [Suspect]
     Active Substance: RITUXIMAB
     Indication: Diabetes mellitus
     Dosage: FOR 4 TIMES OR 1 G EACH TIME. DAYS 1 AND 15, A TOTAL OF 2 COURSES
     Route: 042
  2. RITUXIMAB [Suspect]
     Active Substance: RITUXIMAB
     Indication: Glomerulonephritis membranous

REACTIONS (6)
  - Pneumonia [Unknown]
  - Soft tissue infection [Unknown]
  - Infusion related reaction [Unknown]
  - Hepatic failure [Unknown]
  - White blood cell count decreased [Unknown]
  - Off label use [Unknown]
